FAERS Safety Report 22120631 (Version 1)
Quarter: 2023Q1

REPORT INFORMATION
  Report Type: Report from Study
  Country: US (occurrence: None)
  Receive Date: 20230321
  Receipt Date: 20230321
  Transmission Date: 20230417
  Serious: Yes (Death)
  Sender: FDA-Public Use
  Company Number: US-ROCHE-3313224

PATIENT

DRUGS (2)
  1. ATEZOLIZUMAB [Suspect]
     Active Substance: ATEZOLIZUMAB
     Indication: Neoplasm
     Dosage: FINAL DOSE ON 14/AUG/2017 AND OFF FROM STUDY 05/OCT/2017
     Route: 065
     Dates: start: 20170725
  2. BEVACIZUMAB [Suspect]
     Active Substance: BEVACIZUMAB
     Indication: Neoplasm
     Dosage: FINAL DOSE ON 14/AUG/2017 AND OFF FROM STUDY 05/OCT/2017.
     Route: 065
     Dates: start: 20170725

REACTIONS (1)
  - Disease progression [Fatal]
